FAERS Safety Report 22349398 (Version 1)
Quarter: 2023Q2

REPORT INFORMATION
  Report Type: Spontaneous
  Country: US (occurrence: US)
  Receive Date: 20230522
  Receipt Date: 20230522
  Transmission Date: 20230722
  Serious: Yes (Other)
  Sender: FDA-Public Use
  Company Number: US-VIVUS LLC-2023V1000446

PATIENT
  Age: 42 Year
  Sex: Female
  Weight: 81.72 kg

DRUGS (2)
  1. QSYMIA [Suspect]
     Active Substance: PHENTERMINE HYDROCHLORIDE\TOPIRAMATE
     Indication: Weight decreased
     Route: 048
  2. QSYMIA [Suspect]
     Active Substance: PHENTERMINE HYDROCHLORIDE\TOPIRAMATE
     Indication: Weight decreased
     Route: 065

REACTIONS (6)
  - Autonomic nervous system imbalance [Unknown]
  - Off label use [Recovered/Resolved]
  - Road traffic accident [Unknown]
  - Concussion [Unknown]
  - Ventricular extrasystoles [Unknown]
  - Tachycardia [Unknown]

NARRATIVE: CASE EVENT DATE: 20210101
